FAERS Safety Report 26179691 (Version 1)
Quarter: 2025Q4

REPORT INFORMATION
  Report Type: Spontaneous
  Country: US (occurrence: US)
  Receive Date: 20251219
  Receipt Date: 20251219
  Transmission Date: 20260118
  Serious: No
  Sender: FERRING
  Company Number: US-FERRINGPH-2025FE05378

PATIENT
  Age: 56 Year
  Sex: Female

DRUGS (3)
  1. REBYOTA [Suspect]
     Active Substance: DONOR HUMAN STOOL
     Indication: Product used for unknown indication
     Dosage: 150 ML, ONCE/SINGLE
     Route: 054
     Dates: start: 20250717, end: 20250717
  2. VANCOMYCIN [Concomitant]
     Active Substance: VANCOMYCIN
     Indication: Clostridium difficile infection
     Dosage: 250MG/  5ML DAILY
     Route: 048
     Dates: start: 202504, end: 20250716
  3. OSMOLITE [Concomitant]
     Dosage: EVERY 4 HOURS
     Dates: start: 2022

REACTIONS (1)
  - Clostridium difficile infection [Not Recovered/Not Resolved]

NARRATIVE: CASE EVENT DATE: 20250909
